FAERS Safety Report 6684997-5 (Version None)
Quarter: 2010Q2

REPORT INFORMATION
  Report Type: 
  Country: None (occurrence: None)
  Receive Date: 20100416
  Receipt Date: 20100406
  Transmission Date: 20101027
  Serious: Yes (Other)
  Sender: FDA-Public Use
  Company Number: US-SANOFI-AVENTIS-2010SA020878

PATIENT
  Age: 87 Year
  Sex: Female

DRUGS (5)
  1. LANTUS [Suspect]
     Indication: TYPE 2 DIABETES MELLITUS
     Dosage: INCREASES HER INSULIN 2 UNITS WHEN BS INCREASES. DOSE:16 UNIT(S)
     Route: 058
     Dates: start: 20070911
  2. SOLOSTAR [Suspect]
     Indication: TYPE 2 DIABETES MELLITUS
     Dates: start: 20070911
  3. COUMADIN [Concomitant]
  4. OMEPRAZOLE [Concomitant]
  5. ALL OTHER THERAPEUTIC PRODUCTS [Concomitant]

REACTIONS (3)
  - BLOOD GLUCOSE INCREASED [None]
  - BREAST CANCER [None]
  - GLYCOSYLATED HAEMOGLOBIN INCREASED [None]
